FAERS Safety Report 20025097 (Version 1)
Quarter: 2021Q4

REPORT INFORMATION
  Report Type: Report from Study
  Country: US (occurrence: US)
  Receive Date: 20211102
  Receipt Date: 20211102
  Transmission Date: 20220303
  Serious: Yes (Other)
  Sender: FDA-Public Use
  Company Number: US-JAZZ-2017-US-002069

PATIENT
  Sex: Male

DRUGS (13)
  1. XYREM [Suspect]
     Active Substance: SODIUM OXYBATE
     Indication: Narcolepsy
     Dosage: 2.25 G, BID
     Route: 048
     Dates: start: 200911, end: 2010
  2. XYREM [Suspect]
     Active Substance: SODIUM OXYBATE
     Indication: Cataplexy
     Dosage: DOSE ADJUSTMENT
     Route: 048
     Dates: start: 2010, end: 2013
  3. XYREM [Suspect]
     Active Substance: SODIUM OXYBATE
     Dosage: 3.75 G, BID
     Route: 048
     Dates: start: 201303
  4. LISINOPRIL [Concomitant]
     Active Substance: LISINOPRIL
  5. GLICLAZIDE [Concomitant]
     Active Substance: GLICLAZIDE
  6. FISH OIL [Concomitant]
     Active Substance: FISH OIL
  7. MOMETASONE FUROATE [Concomitant]
     Active Substance: MOMETASONE FUROATE
  8. DIMETHYL SULFONE [Concomitant]
     Active Substance: DIMETHYL SULFONE
  9. NAPROSYN [Concomitant]
     Active Substance: NAPROXEN
  10. NUVIGIL [Concomitant]
     Active Substance: ARMODAFINIL
  11. GLUCOSAMINE + CHONDROITIN [CHONDROITIN SULFATE;GLUCOSAMINE] [Concomitant]
  12. NAPROXEN [Concomitant]
     Active Substance: NAPROXEN
  13. PROVIGIL [Concomitant]
     Active Substance: MODAFINIL

REACTIONS (1)
  - IgA nephropathy [Not Recovered/Not Resolved]
